FAERS Safety Report 11903242 (Version 1)
Quarter: 2016Q1

REPORT INFORMATION
  Report Type: Spontaneous
  Country: US (occurrence: US)
  Receive Date: 20160110
  Receipt Date: 20160110
  Transmission Date: 20160526
  Serious: No
  Sender: FDA-Public Use
  Company Number: US-ASTRAZENECA-2015SF31146

PATIENT
  Sex: Male

DRUGS (1)
  1. BYETTA [Suspect]
     Active Substance: EXENATIDE
     Dosage: 250 MCG / 2.4 ML, UNKNOWN
     Route: 058

REACTIONS (5)
  - Nausea [Unknown]
  - Overdose [Unknown]
  - Needle issue [Unknown]
  - Gastrointestinal disorder [Unknown]
  - Underdose [Unknown]
